FAERS Safety Report 11394260 (Version 1)
Quarter: 2015Q3

REPORT INFORMATION
  Report Type: Spontaneous
  Country: AU (occurrence: None)
  Receive Date: 20150817
  Receipt Date: 20150817
  Transmission Date: 20151125
  Serious: Yes (Life-Threatening, Hospitalization)
  Sender: FDA-Public Use
  Company Number: NSR_02209_2015

PATIENT
  Age: 51 Year
  Sex: Female

DRUGS (5)
  1. PANTOPRAZOLE [Concomitant]
     Active Substance: PANTOPRAZOLE SODIUM
  2. VITAMIN D [Concomitant]
     Active Substance: CHOLECALCIFEROL
  3. ERYTHROMYCIN (ERYTHROMYCIN) [Suspect]
     Active Substance: ERYTHROMYCIN
     Indication: PRODUCT USED FOR UNKNOWN INDICATION
     Dosage: DF; 2 DOSES
  4. ALLOPURINOL (ALLOPURINOL) [Suspect]
     Active Substance: ALLOPURINOL
     Indication: PRODUCT USED FOR UNKNOWN INDICATION
  5. PERINDOPRIL [Concomitant]
     Active Substance: PERINDOPRIL

REACTIONS (11)
  - Hypotension [None]
  - Septic shock [None]
  - Congenital cystic kidney disease [None]
  - Disseminated intravascular coagulation [None]
  - Pleural effusion [None]
  - Drug reaction with eosinophilia and systemic symptoms [None]
  - Thrombocytopenia [None]
  - Haemofiltration [None]
  - Anaemia [None]
  - International normalised ratio increased [None]
  - Dehydration [None]
